FAERS Safety Report 5148431-9 (Version None)
Quarter: 2006Q4

REPORT INFORMATION
  Report Type: 
  Country: None (occurrence: None)
  Receive Date: 20061110
  Receipt Date: 20061101
  Transmission Date: 20070319
  Serious: Yes (Hospitalization)
  Sender: FDA-Public Use
  Company Number: BR-ABBOTT-06P-020-0349462-00

PATIENT
  Sex: Male
  Weight: 68 kg

DRUGS (9)
  1. HUMIRA [Suspect]
     Indication: RHEUMATOID ARTHRITIS
     Route: 058
     Dates: start: 20060201
  2. HUMIRA [Suspect]
  3. OMEPRAZOLE [Concomitant]
     Indication: ABDOMINAL PAIN UPPER
     Route: 048
     Dates: start: 20060901
  4. CYCLOSPORINE [Concomitant]
     Indication: RHEUMATOID ARTHRITIS
     Route: 048
     Dates: start: 19960101
  5. CORTISONE ACETATE [Concomitant]
     Indication: RHEUMATOID ARTHRITIS
     Route: 048
  6. KETOPROFEN [Concomitant]
     Indication: RHEUMATOID ARTHRITIS
     Route: 048
  7. SPIRONOLACTONE [Concomitant]
     Indication: RHEUMATOID ARTHRITIS
     Route: 048
     Dates: start: 20051101
  8. AMITRIPTYLINE HCL [Concomitant]
     Indication: RHEUMATOID ARTHRITIS
     Route: 048
     Dates: start: 20061001
  9. ETANERCEPT [Concomitant]
     Indication: RHEUMATOID ARTHRITIS

REACTIONS (1)
  - ULCER [None]
